FAERS Safety Report 10229676 (Version 1)
Quarter: 2014Q2

REPORT INFORMATION
  Report Type: Spontaneous
  Country: US (occurrence: None)
  Receive Date: 20140610
  Receipt Date: 20140610
  Transmission Date: 20141212
  Serious: Yes (Death, Other)
  Sender: FDA-Public Use
  Company Number: None

PATIENT
  Sex: Female

DRUGS (1)
  1. MYRBETRIQ [Suspect]
     Indication: BLADDER DISORDER
     Dosage: 1 PILL DAILY, BY MOUTH
     Dates: start: 20130323, end: 20130326

REACTIONS (3)
  - Skin discolouration [None]
  - Blood blister [None]
  - Scar [None]
